FAERS Safety Report 7287194-8 (Version None)
Quarter: 2010Q4

REPORT INFORMATION
  Report Type: 
  Country: None (occurrence: None)
  Receive Date: 20101222
  Receipt Date: 20101102
  Transmission Date: 20110411
  Serious: Yes (Death)
  Sender: FDA-Public Use
  Company Number: UTC-001907

PATIENT
  Age: 53 Year
  Sex: Female
  Weight: 74.8 kg

DRUGS (4)
  1. TYVASO [Suspect]
     Indication: PULMONARY HYPERTENSION
     Dosage: (36 MCG), INHALATION
     Route: 055
     Dates: start: 20100312, end: 20101030
  2. TRACLEER [Concomitant]
  3. COUMADIN [Concomitant]
  4. DIURETICS (DIURETICS) [Concomitant]

REACTIONS (1)
  - MYOCARDIAL INFARCTION [None]
